FAERS Safety Report 5496285-3 (Version None)
Quarter: 2007Q4

REPORT INFORMATION
  Report Type: 
  Country: None (occurrence: None)
  Receive Date: 20071025
  Receipt Date: 20070321
  Transmission Date: 20080405
  Serious: No
  Sender: FDA-Public Use
  Company Number: A0644077A

PATIENT
  Age: 86 Year
  Sex: Male

DRUGS (3)
  1. ADVAIR DISKUS 100/50 [Suspect]
     Indication: DRUG USE FOR UNKNOWN INDICATION
     Route: 055
     Dates: start: 20050701
  2. BLOOD PRESSURE MEDICATION [Concomitant]
  3. UNKNOWN MEDICATION [Concomitant]
     Indication: BLOOD CHOLESTEROL INCREASED

REACTIONS (1)
  - DYSPHONIA [None]
